FAERS Safety Report 8563842-7 (Version None)
Quarter: 2012Q3

REPORT INFORMATION
  Report Type: 
  Country: None (occurrence: None)
  Receive Date: 20120727
  Receipt Date: 20120727
  Transmission Date: 20120928
  Serious: Yes (Hospitalization)
  Sender: FDA-Public Use
  Company Number: None

PATIENT
  Age: 54 Year
  Sex: Female
  Weight: 64 kg

DRUGS (8)
  1. SEPTRA [Concomitant]
  2. SPIRONOLACTONE [Concomitant]
  3. HYDROCHLOROTHIAZIDE [Concomitant]
  4. METOPROLOL TARTRATE [Concomitant]
  5. ASPIRIN [Concomitant]
  6. LOVENOX [Suspect]
     Indication: CHOLECYSTECTOMY
     Dosage: 70 MGQ12HRS SQ RECENT
     Route: 058
  7. COUMADIN [Suspect]
     Dosage: 2MG/4 MG QAM/QPM PO CHRONIC
     Route: 048
  8. AZITHROMYCIN [Concomitant]

REACTIONS (2)
  - INTRA-ABDOMINAL HAEMORRHAGE [None]
  - ABDOMINAL PAIN [None]
